FAERS Safety Report 24767257 (Version 1)
Quarter: 2024Q4

REPORT INFORMATION
  Report Type: Spontaneous
  Country: CO (occurrence: CO)
  Receive Date: 20241223
  Receipt Date: 20241223
  Transmission Date: 20250114
  Serious: Yes (Other)
  Sender: BAXTER
  Company Number: CO-BAXTER-2024BAX029796

PATIENT
  Sex: Female

DRUGS (1)
  1. SODIUM CHLORIDE [Suspect]
     Active Substance: SODIUM CHLORIDE
     Dosage: UNK
     Route: 065
     Dates: start: 20241212

REACTIONS (9)
  - Anaphylactic reaction [Unknown]
  - Bradycardia [Unknown]
  - Hypoxia [Unknown]
  - Obstructive airways disorder [Unknown]
  - Dizziness [Unknown]
  - Pallor [Unknown]
  - Hyperhidrosis [Unknown]
  - Rash [Unknown]
  - Hypersensitivity [Unknown]

NARRATIVE: CASE EVENT DATE: 20241212
